FAERS Safety Report 17048099 (Version 5)
Quarter: 2022Q4

REPORT INFORMATION
  Report Type: Spontaneous
  Country: US (occurrence: US)
  Receive Date: 20191119
  Receipt Date: 20221006
  Transmission Date: 20230112
  Serious: No
  Sender: FDA-Public Use
  Company Number: US-PFIZER INC-2019494818

PATIENT
  Age: 94 Year
  Sex: Female
  Weight: 52.154 kg

DRUGS (5)
  1. XELJANZ [Suspect]
     Active Substance: TOFACITINIB CITRATE
     Dosage: 5 MG, 2X/DAY
     Route: 048
  2. PROLIA [Suspect]
     Active Substance: DENOSUMAB
     Dosage: 1 ML, EVERY 6 MONTHS (60 MG/ML 1 ML INJECTION EVERY 6 MOS.)
  3. CALCIUM [Suspect]
     Active Substance: CALCIUM
     Dosage: UNK, 2X/DAY (500-500-40 MG-UNIT-MCQ)
  4. AMLODIPINE BESYLATE [Concomitant]
     Active Substance: AMLODIPINE BESYLATE
     Dosage: 5 MG, 2X/DAY
  5. TYLENOL EXTRA STRENGTH [Concomitant]
     Active Substance: ACETAMINOPHEN
     Dosage: 1000 MG, 2X/DAY

REACTIONS (3)
  - Musculoskeletal disorder [Not Recovered/Not Resolved]
  - Hypoacusis [Not Recovered/Not Resolved]
  - Urinary tract infection [Not Recovered/Not Resolved]

NARRATIVE: CASE EVENT DATE: 20170201
